FAERS Safety Report 12272026 (Version 1)
Quarter: 2016Q2

REPORT INFORMATION
  Report Type: Spontaneous
  Country: US (occurrence: US)
  Receive Date: 20160415
  Receipt Date: 20160415
  Transmission Date: 20160815
  Serious: Yes (Hospitalization)
  Sender: FDA-Public Use
  Company Number: US-INCYTE CORPORATION-2016IN002121

PATIENT
  Sex: Male

DRUGS (1)
  1. JAKAFI [Suspect]
     Active Substance: RUXOLITINIB
     Dosage: 10 MG, BID
     Route: 048
     Dates: start: 20151120

REACTIONS (4)
  - Rhinitis [Recovering/Resolving]
  - Cough [Recovering/Resolving]
  - Tachycardia [Recovering/Resolving]
  - Pneumonia [Recovering/Resolving]
